FAERS Safety Report 9172032 (Version 2)
Quarter: 2013Q2

REPORT INFORMATION
  Report Type: Spontaneous
  Country: US (occurrence: US)
  Receive Date: 20130319
  Receipt Date: 20130405
  Transmission Date: 20140414
  Serious: Yes (Death, Hospitalization)
  Sender: FDA-Public Use
  Company Number: US-GILEAD-2013-0071937

PATIENT
  Age: 66 Year
  Sex: Female

DRUGS (15)
  1. LETAIRIS [Suspect]
     Indication: PULMONARY HYPERTENSION
     Dosage: 10 MG, QD
     Route: 048
     Dates: start: 201009, end: 201302
  2. LETAIRIS [Suspect]
     Indication: POLYARTHRITIS
  3. OXYGEN [Concomitant]
  4. REVATIO [Concomitant]
  5. VENTAVIS [Concomitant]
  6. LASIX                              /00032601/ [Concomitant]
  7. KLOR-CON [Concomitant]
  8. BUSPAR [Concomitant]
  9. ESKALITH [Concomitant]
  10. EFFEXOR [Concomitant]
  11. NORCO [Concomitant]
  12. FOSAMAX D [Concomitant]
  13. CYTOMEL [Concomitant]
  14. NEURONTIN [Concomitant]
  15. COUMADIN                           /00014802/ [Concomitant]

REACTIONS (8)
  - Sepsis [Fatal]
  - Urinary tract infection [Unknown]
  - Pyrexia [Unknown]
  - Atrial fibrillation [Unknown]
  - Respiratory disorder [Unknown]
  - Bacterial infection [Unknown]
  - Haemoptysis [Unknown]
  - Dyspnoea [Unknown]
